FAERS Safety Report 4761765-2 (Version None)
Quarter: 2005Q3

REPORT INFORMATION
  Report Type: 
  Country: None (occurrence: None)
  Receive Date: 20050906
  Receipt Date: 20050830
  Transmission Date: 20060218
  Serious: Yes (Life-Threatening, Hospitalization, Other)
  Sender: FDA-Public Use
  Company Number: PHFR2005GB02878

PATIENT
  Age: 73 Year
  Sex: Female

DRUGS (8)
  1. DICLOFENAC [Suspect]
     Route: 065
  2. LOSARTAN POTASSIUM [Suspect]
     Route: 065
  3. AMINOPHYLLINE [Concomitant]
     Route: 065
  4. SYMBICORT TURBUHALER [Concomitant]
     Route: 065
  5. COMBIVENT                               /GFR/ [Concomitant]
     Route: 065
  6. TRAMADOL HCL [Concomitant]
     Route: 065
  7. OMEPRAZOLE [Concomitant]
     Route: 065
  8. FUROSEMIDE [Suspect]
     Route: 065

REACTIONS (9)
  - BASE EXCESS ABNORMAL [None]
  - BLOOD BICARBONATE DECREASED [None]
  - BLOOD CREATININE INCREASED [None]
  - BLOOD UREA INCREASED [None]
  - GLASGOW COMA SCALE ABNORMAL [None]
  - METABOLIC ACIDOSIS [None]
  - PCO2 INCREASED [None]
  - PH BODY FLUID DECREASED [None]
  - RENAL FAILURE [None]
